FAERS Safety Report 12409187 (Version 1)
Quarter: 2016Q2

REPORT INFORMATION
  Report Type: Spontaneous
  Country: None (occurrence: FR)
  Receive Date: 20160526
  Receipt Date: 20160526
  Transmission Date: 20160815
  Serious: Yes (Death, Other)
  Sender: FDA-Public Use
  Company Number: FR-MDT-ADR-2016-00957

PATIENT
  Age: 46 Year
  Sex: Male

DRUGS (3)
  1. APROVEL (IRBESARTAN) [Suspect]
     Active Substance: IRBESARTAN
  2. BACLOFEN. [Suspect]
     Active Substance: BACLOFEN
  3. SERTRALINE (NGX) [Suspect]
     Active Substance: SERTRALINE HYDROCHLORIDE

REACTIONS (3)
  - Toxicity to various agents [Fatal]
  - Drug screen positive [Fatal]
  - Asphyxia [Fatal]
